FAERS Safety Report 4668611-6 (Version None)
Quarter: 2005Q2

REPORT INFORMATION
  Report Type: 
  Country: None (occurrence: None)
  Receive Date: 20050523
  Receipt Date: 20041103
  Transmission Date: 20051028
  Serious: Yes (Hospitalization, Other)
  Sender: FDA-Public Use
  Company Number: PHNU2004DE03729

PATIENT
  Sex: Female
  Weight: 60 kg

DRUGS (1)
  1. ZOMETA [Suspect]

REACTIONS (6)
  - JAW DISORDER [None]
  - OSTEONECROSIS [None]
  - PERIODONTITIS [None]
  - SEQUESTRECTOMY [None]
  - SWELLING [None]
  - TOOTH EXTRACTION [None]
